FAERS Safety Report 8577703-0 (Version None)
Quarter: 2012Q3

REPORT INFORMATION
  Report Type: 
  Country: None (occurrence: None)
  Receive Date: 20120808
  Receipt Date: 20120731
  Transmission Date: 20120928
  Serious: Yes (Hospitalization)
  Sender: FDA-Public Use
  Company Number: PT-AMGEN-PRTSP2012047889

PATIENT
  Sex: Male

DRUGS (4)
  1. BLEOMYCIN SULFATE [Concomitant]
     Indication: TESTIS CANCER
  2. ETOPOSIDE [Concomitant]
     Indication: TESTIS CANCER
  3. NEULASTA [Suspect]
     Indication: CHEMOTHERAPY
     Dosage: UNK
     Dates: start: 20120101
  4. CISPLATIN [Concomitant]
     Indication: TESTIS CANCER

REACTIONS (1)
  - FEBRILE NEUTROPENIA [None]
